FAERS Safety Report 24438113 (Version 1)
Quarter: 2024Q4

REPORT INFORMATION
  Report Type: Spontaneous
  Country: US (occurrence: US)
  Receive Date: 20241015
  Receipt Date: 20241015
  Transmission Date: 20250115
  Serious: No
  Sender: GLAND PHARMA LTD
  Company Number: US-GLANDPHARMA-US-2024GLNSPO00842

PATIENT
  Sex: Male

DRUGS (1)
  1. OXALIPLATIN [Suspect]
     Active Substance: OXALIPLATIN
     Indication: Product used for unknown indication
     Route: 065

REACTIONS (8)
  - Sensory disturbance [Unknown]
  - Aversion [Unknown]
  - Cold dysaesthesia [Unknown]
  - Fatigue [Unknown]
  - Nausea [Unknown]
  - Paraesthesia [Unknown]
  - Hypoaesthesia [Unknown]
  - Dysarthria [Unknown]
